FAERS Safety Report 6164004-3 (Version None)
Quarter: 2009Q2

REPORT INFORMATION
  Report Type: 
  Country: None (occurrence: None)
  Receive Date: 20090422
  Receipt Date: 20090410
  Transmission Date: 20091009
  Serious: Yes (Hospitalization)
  Sender: FDA-Public Use
  Company Number: JP-SANOFI-SYNTHELABO-A01200902979

PATIENT
  Sex: Male
  Weight: 70 kg

DRUGS (10)
  1. AMINOLEBEAN [Concomitant]
     Indication: HYPERAMMONAEMIA
     Dosage: 500-200 ML
     Dates: start: 20090312, end: 20090316
  2. DIAZEPAM [Concomitant]
     Indication: RESTLESSNESS
     Dosage: 1 DF
     Route: 042
     Dates: start: 20090311, end: 20090311
  3. CONTOMIN [Concomitant]
     Indication: RESTLESSNESS
     Dosage: DF
     Route: 042
     Dates: start: 20090311, end: 20090311
  4. SERENACE [Concomitant]
     Indication: RESTLESSNESS
     Dosage: 1 DF
     Route: 042
     Dates: start: 20090311, end: 20090312
  5. PRIMPERAN [Concomitant]
     Indication: NAUSEA
     Dosage: 2 DF
     Route: 042
     Dates: start: 20090310, end: 20090311
  6. KYTRIL [Concomitant]
     Dosage: 3 MG
     Route: 042
     Dates: start: 20090224, end: 20090310
  7. FLUOROURACIL [Suspect]
     Dosage: 700MG/BODY (395.5MG/M2) IN BOLUS THEN 4250MG/BODY/D1-2 (2401.1MG/M2/D1-2)
     Route: 042
     Dates: start: 20090311, end: 20090311
  8. BEVACIZUMAB [Concomitant]
     Indication: LARGE INTESTINE CARCINOMA
     Dosage: 350 MG
     Route: 041
     Dates: start: 20090310, end: 20090310
  9. ELPLAT [Suspect]
     Indication: LARGE INTESTINE CARCINOMA
     Dosage: 154 MG
     Route: 041
     Dates: start: 20090310, end: 20090310
  10. CALCIUM LEVOFOLINATE [Concomitant]
     Indication: LARGE INTESTINE CARCINOMA
     Dosage: 350MG/BODY (197.7MG/M2) UNK
     Route: 041
     Dates: start: 20090310, end: 20090310

REACTIONS (2)
  - HEPATIC ENCEPHALOPATHY [None]
  - HEPATIC FAILURE [None]
